FAERS Safety Report 9142684 (Version 2)
Quarter: 2013Q3

REPORT INFORMATION
  Report Type: Report from Study
  Country: CA (occurrence: CA)
  Receive Date: 20130306
  Receipt Date: 20130701
  Transmission Date: 20140515
  Serious: Yes (Other)
  Sender: FDA-Public Use
  Company Number: CA-JNJFOC-20130216345

PATIENT
  Sex: Female
  Weight: 68 kg

DRUGS (8)
  1. STELARA [Suspect]
     Indication: PSORIASIS
     Route: 058
  2. STELARA [Suspect]
     Indication: PSORIASIS
     Route: 058
     Dates: start: 20120710
  3. ACCUPRIL [Concomitant]
     Route: 048
  4. LORAZEPAM [Concomitant]
     Route: 048
  5. CLOMIPRAMINE [Concomitant]
     Route: 048
  6. PANTOPRAZOLE [Concomitant]
     Route: 048
  7. TRIAMIZIDE [Concomitant]
     Route: 048
  8. DOVOBET [Concomitant]
     Route: 061

REACTIONS (2)
  - Pustular psoriasis [Not Recovered/Not Resolved]
  - Psoriasis [Not Recovered/Not Resolved]
